FAERS Safety Report 5145293-0 (Version None)
Quarter: 2006Q4

REPORT INFORMATION
  Report Type: 
  Country: None (occurrence: None)
  Receive Date: 20061101
  Receipt Date: 20061017
  Transmission Date: 20070319
  Serious: Yes (Other)
  Sender: FDA-Public Use
  Company Number: 14995

PATIENT
  Age: 50 Year
  Sex: Female

DRUGS (8)
  1. CISPLATIN [Suspect]
     Indication: GASTRIC CANCER
  2. FLUOROURACIL [Suspect]
     Indication: GASTRIC CANCER
  3. FLUOROURACIL [Suspect]
     Indication: GASTRIC CANCER
  4. FLUOROURACIL [Suspect]
     Indication: GASTRIC CANCER
  5. IRINOTECAN HCL [Suspect]
     Indication: GASTRIC CANCER
  6. MITOMYCIN [Suspect]
     Indication: GASTRIC CANCER
  7. 5-HT3 [Concomitant]
  8. METOCLOPRAMIDE [Concomitant]

REACTIONS (3)
  - ANTINUCLEAR ANTIBODY POSITIVE [None]
  - ARTHRALGIA [None]
  - ARTHROPATHY [None]
